FAERS Safety Report 9226875 (Version 6)
Quarter: 2014Q2

REPORT INFORMATION
  Report Type: Spontaneous
  Country: US (occurrence: US)
  Receive Date: 20130412
  Receipt Date: 20140612
  Transmission Date: 20141212
  Serious: Yes (Other)
  Sender: FDA-Public Use
  Company Number: US-PFIZER INC-2013112811

PATIENT
  Age: 76 Year
  Sex: Female
  Weight: 65.8 kg

DRUGS (2)
  1. NARDIL [Suspect]
     Indication: DEPRESSION
     Dosage: 30 MG, 2X/DAY
     Dates: end: 20140526
  2. SEROQUEL [Concomitant]
     Dosage: 300 MG, DAILY

REACTIONS (3)
  - Fall [Unknown]
  - Jaw fracture [Unknown]
  - Panic reaction [Unknown]
